FAERS Safety Report 24628798 (Version 2)
Quarter: 2024Q4

REPORT INFORMATION
  Report Type: Report from Study
  Country: MX (occurrence: MX)
  Receive Date: 20241117
  Receipt Date: 20241213
  Transmission Date: 20250114
  Serious: Yes (Hospitalization, Other)
  Sender: BIOVITRUM
  Company Number: MX-AstraZeneca-CH-00744307A

PATIENT
  Age: 12 Week
  Sex: Male
  Weight: 3.25 kg

DRUGS (3)
  1. PALIVIZUMAB [Suspect]
     Active Substance: PALIVIZUMAB
     Indication: Antiviral prophylaxis
     Dosage: 1ST DOSE?MONTHLY
     Route: 030
  2. PALIVIZUMAB [Suspect]
     Active Substance: PALIVIZUMAB
     Dosage: 2ND DOSE?0.4 ML MONTHLY
     Route: 030
     Dates: start: 20241106
  3. PALIVIZUMAB [Suspect]
     Active Substance: PALIVIZUMAB
     Dosage: 3RD DOSE?0.5 ML MONTHLY
     Route: 030
     Dates: start: 20241204

REACTIONS (7)
  - Pyrexia [Recovered/Resolved]
  - Skin laceration [Recovered/Resolved]
  - Crying [Recovered/Resolved]
  - Inguinal hernia [Unknown]
  - Restlessness [Recovered/Resolved]
  - Constipation [Recovering/Resolving]
  - Discomfort [Recovered/Resolved]

NARRATIVE: CASE EVENT DATE: 20241001
